FAERS Safety Report 24812810 (Version 1)
Quarter: 2025Q1

REPORT INFORMATION
  Report Type: Spontaneous
  Country: US (occurrence: US)
  Receive Date: 20250107
  Receipt Date: 20250107
  Transmission Date: 20250408
  Serious: No
  Sender: ABBVIE
  Company Number: US-ABBVIE-6072910

PATIENT
  Sex: Female

DRUGS (1)
  1. RISANKIZUMAB [Suspect]
     Active Substance: RISANKIZUMAB
     Indication: Psoriasis
     Route: 058

REACTIONS (4)
  - Pain [Unknown]
  - Chest pain [Unknown]
  - Headache [Unknown]
  - Gastrointestinal disorder [Unknown]

NARRATIVE: CASE EVENT DATE: 20241228
